FAERS Safety Report 5023046-1 (Version None)
Quarter: 2006Q2

REPORT INFORMATION
  Report Type: 
  Country: None (occurrence: None)
  Receive Date: 20060426
  Receipt Date: 20060210
  Transmission Date: 20061013
  Serious: Yes (Other)
  Sender: FDA-Public Use
  Company Number: 2005085850

PATIENT
  Age: 38 Year
  Sex: Female
  Weight: 73.4827 kg

DRUGS (6)
  1. LYRICA [Suspect]
     Indication: COMPLEX REGIONAL PAIN SYNDROME
     Dosage: ONCE (25 MG),ORAL
     Route: 048
     Dates: start: 20050601, end: 20050601
  2. LYRICA [Suspect]
     Indication: FIBROMYALGIA
     Dosage: ONCE (25 MG),ORAL
     Route: 048
     Dates: start: 20050601, end: 20050601
  3. LYRICA [Suspect]
     Indication: NEUROPATHY PERIPHERAL
     Dosage: ONCE (25 MG),ORAL
     Route: 048
     Dates: start: 20050601, end: 20050601
  4. METHADONE HCL [Concomitant]
  5. ZOLOFT [Concomitant]
  6. LAMICTAL [Concomitant]

REACTIONS (1)
  - PRURITUS [None]
